FAERS Safety Report 23441771 (Version 1)
Quarter: 2024Q1

REPORT INFORMATION
  Report Type: Spontaneous
  Country: US (occurrence: US)
  Receive Date: 20240125
  Receipt Date: 20240125
  Transmission Date: 20240409
  Serious: Yes (Death, Other)
  Sender: FDA-Public Use
  Company Number: US-SUN PHARMACEUTICAL INDUSTRIES LTD-2024R1-428226

PATIENT
  Age: 42 Year
  Sex: Female

DRUGS (1)
  1. SPIRONOLACTONE [Suspect]
     Active Substance: SPIRONOLACTONE
     Indication: Hypokalaemia
     Dosage: UNKNOWN
     Route: 065

REACTIONS (2)
  - Treatment failure [Fatal]
  - Disease progression [Fatal]
